FAERS Safety Report 15075475 (Version 1)
Quarter: 2018Q2

REPORT INFORMATION
  Report Type: Spontaneous
  Country: US (occurrence: US)
  Receive Date: 20180627
  Receipt Date: 20180627
  Transmission Date: 20180711
  Serious: Yes (Other)
  Sender: FDA-Public Use
  Company Number: US-SAOL THERAPEUTICS-2018SAO00661

PATIENT
  Age: 71 Year
  Sex: Male

DRUGS (3)
  1. BACLOFEN. [Suspect]
     Active Substance: BACLOFEN
     Indication: SPINAL PAIN
     Dosage: 5.163 ?G, \DAY
     Route: 037
  2. BUPIVACAINE. [Suspect]
     Active Substance: BUPIVACAINE
     Dosage: 1.29 MG, \DAY
     Route: 037
  3. SUFENTANIL [Suspect]
     Active Substance: SUFENTANIL
     Dosage: 5.163 ?G, \DAY
     Route: 037

REACTIONS (3)
  - Pain [Recovered/Resolved]
  - Complication associated with device [Recovered/Resolved]
  - Off label use [Not Recovered/Not Resolved]

NARRATIVE: CASE EVENT DATE: 201803
